FAERS Safety Report 4688849-1 (Version None)
Quarter: 2005Q2

REPORT INFORMATION
  Report Type: 
  Country: None (occurrence: None)
  Receive Date: 20050613
  Receipt Date: 20050531
  Transmission Date: 20051028
  Serious: Yes (Hospitalization)
  Sender: FDA-Public Use
  Company Number: FR-GLAXOSMITHKLINE-B0383834A

PATIENT
  Age: 7 Year
  Sex: Male
  Weight: 26 kg

DRUGS (8)
  1. ZOVIRAX [Suspect]
     Indication: VARICELLA
     Dosage: 500MG THREE TIMES PER DAY
     Route: 042
     Dates: start: 20050428, end: 20050503
  2. AMBISOME [Suspect]
     Indication: OSTEOMYELITIS CHRONIC
     Dosage: 15MG PER DAY
     Route: 042
     Dates: start: 20050423, end: 20050426
  3. AMBISOME [Suspect]
     Dosage: 50MG PER DAY
     Route: 042
     Dates: start: 20050503
  4. FUNGIZONE [Suspect]
     Indication: OSTEOMYELITIS CHRONIC
     Dosage: 22.5MG PER DAY
     Route: 042
     Dates: start: 20050427, end: 20050502
  5. ZOVIRAX [Concomitant]
     Route: 048
     Dates: start: 20050503
  6. AMOXICILLIN [Concomitant]
     Indication: ORAL INFECTION
     Dosage: 100MG TWICE PER DAY
     Route: 048
  7. CLAFORAN [Concomitant]
     Indication: OSTEOMYELITIS CHRONIC
     Dosage: 1G THREE TIMES PER DAY
     Route: 042
     Dates: start: 20050422
  8. FOSFOMYCINE [Concomitant]
     Indication: OSTEOMYELITIS CHRONIC
     Dosage: 1G UNKNOWN
     Route: 042
     Dates: start: 20050422

REACTIONS (8)
  - BLOOD CREATININE INCREASED [None]
  - BLOOD POTASSIUM INCREASED [None]
  - BLOOD UREA INCREASED [None]
  - GLOMERULONEPHRITIS [None]
  - HAEMATURIA [None]
  - INFECTION [None]
  - PROTEINURIA [None]
  - RENAL FAILURE [None]
